FAERS Safety Report 15118949 (Version 2)
Quarter: 2018Q3

REPORT INFORMATION
  Report Type: Spontaneous
  Country: NL (occurrence: NL)
  Receive Date: 20180709
  Receipt Date: 20180720
  Transmission Date: 20181010
  Serious: Yes (Other)
  Sender: FDA-Public Use
  Company Number: NL-TEVA-2018-NL-922531

PATIENT
  Age: 59 Year
  Sex: Female

DRUGS (5)
  1. DICLOFENAC [Suspect]
     Active Substance: DICLOFENAC
     Dosage: 12.5 MILLIGRAM DAILY; 1 TIME PER DAY
     Route: 065
     Dates: start: 20171023, end: 20171025
  2. SERETIDE DISK 50/250MG [Concomitant]
     Route: 065
  3. SUMATRIPTAN 50MG [Concomitant]
     Active Substance: SUMATRIPTAN
     Route: 065
  4. DESLORATADINE 5MG [Concomitant]
     Active Substance: DESLORATADINE
     Route: 065
  5. RANITIDE 150MG [Concomitant]
     Route: 065

REACTIONS (4)
  - Hypersensitivity [Recovered/Resolved]
  - Aphasia [Recovered/Resolved]
  - Pruritus [Recovered/Resolved]
  - Blood pressure decreased [Recovered/Resolved]

NARRATIVE: CASE EVENT DATE: 20171025
